FAERS Safety Report 7374135-8 (Version None)
Quarter: 2011Q1

REPORT INFORMATION
  Report Type: 
  Country: None (occurrence: None)
  Receive Date: 20110325
  Receipt Date: 20110322
  Transmission Date: 20110831
  Serious: No
  Sender: FDA-Public Use
  Company Number: US-PFIZER INC-US-WYE-H15065610

PATIENT
  Sex: Male
  Weight: 85.7 kg

DRUGS (9)
  1. COUMADIN [Suspect]
     Indication: THROMBOSIS
     Dosage: 10 MG, 1X/DAY WITH 11 MG ON MONDAY AND THURSDAY
     Route: 065
     Dates: start: 20000101
  2. COZAAR [Suspect]
     Indication: HYPERTENSION
     Dosage: 50.0 MG, 1X/DAY
     Route: 048
     Dates: start: 20000101
  3. ZETIA [Suspect]
     Dosage: 5.0 MG, 1X/DAY
     Route: 065
     Dates: start: 20070101
  4. PROTONIX [Suspect]
     Indication: GASTROOESOPHAGEAL REFLUX DISEASE
     Dosage: 40.0 MG, 1X/DAY
     Route: 065
     Dates: start: 20070101
  5. TORASEMIDE [Suspect]
     Indication: FLUID RETENTION
     Dosage: 10.0 MG, 1X/DAY
     Route: 048
  6. TOPROL-XL [Suspect]
     Indication: HYPERTENSION
     Dosage: 50.0 MG, 1X/DAY
     Route: 065
     Dates: start: 20040101
  7. NIFEDIPINE [Suspect]
     Dosage: 60.0 MG, 1X/DAY
     Route: 065
     Dates: start: 20100401
  8. GLUCOPHAGE [Suspect]
     Indication: DIABETES MELLITUS
     Dosage: 500.0 MG, 2X/DAY
     Route: 065
     Dates: start: 20030101
  9. LOVASTATIN [Suspect]
     Indication: HYPERCHOLESTEROLAEMIA
     Dosage: 40.0 MG, 2X/DAY
     Route: 048
     Dates: start: 20050101

REACTIONS (2)
  - DRUG INTERACTION [None]
  - DIZZINESS POSTURAL [None]
